FAERS Safety Report 7112974-9 (Version None)
Quarter: 2010Q4

REPORT INFORMATION
  Report Type: 
  Country: None (occurrence: None)
  Receive Date: 20101119
  Receipt Date: 20101109
  Transmission Date: 20110411
  Serious: Yes (Hospitalization)
  Sender: FDA-Public Use
  Company Number: GR-JNJFOC-20100905512

PATIENT
  Age: 60 Year
  Sex: Male

DRUGS (4)
  1. STELARA [Suspect]
     Indication: PSORIASIS
     Route: 058
     Dates: start: 20090610
  2. FILICINE [Concomitant]
     Indication: PRODUCT USED FOR UNKNOWN INDICATION
  3. METHOTREXATE [Concomitant]
     Indication: ILL-DEFINED DISORDER
     Dates: start: 20090309
  4. MEDROL [Concomitant]
     Route: 030

REACTIONS (3)
  - ANAEMIA [None]
  - METASTATIC GASTRIC CANCER [None]
  - MYOCARDIAL INFARCTION [None]
